FAERS Safety Report 18717100 (Version 1)
Quarter: 2021Q1

REPORT INFORMATION
  Report Type: Spontaneous
  Country: US (occurrence: US)
  Receive Date: 20210108
  Receipt Date: 20210108
  Transmission Date: 20210419
  Serious: No
  Sender: FDA-Public Use
  Company Number: US-MYLANLABS-2020M1107084

PATIENT
  Age: 54 Year
  Sex: Female

DRUGS (1)
  1. LIDOCAINE PATCH [Suspect]
     Active Substance: LIDOCAINE
     Indication: ARTHRITIS
     Dosage: ON PATCH EACH DAY ON BACK, AND ONE ON EACH KNEE
     Route: 003
     Dates: start: 20201229

REACTIONS (5)
  - Off label use [Not Recovered/Not Resolved]
  - Product quality issue [Unknown]
  - Product dose omission issue [Not Recovered/Not Resolved]
  - Product adhesion issue [Not Recovered/Not Resolved]
  - Arthritis [Not Recovered/Not Resolved]

NARRATIVE: CASE EVENT DATE: 20201229
